FAERS Safety Report 8376242-X (Version None)
Quarter: 2012Q2

REPORT INFORMATION
  Report Type: 
  Country: None (occurrence: None)
  Receive Date: 20120518
  Receipt Date: 20120514
  Transmission Date: 20120825
  Serious: Yes (Other)
  Sender: FDA-Public Use
  Company Number: SP05751

PATIENT
  Age: 64 Year
  Sex: Female
  Weight: 61.2356 kg

DRUGS (1)
  1. XIFAXAN [Suspect]
     Indication: LIVER DISORDER
     Dosage: 1100 MG (550 MG,2 IN 1 D),ORAL
     Route: 048
     Dates: start: 20110820, end: 20110911

REACTIONS (2)
  - GASTRIC PERFORATION [None]
  - DUODENAL PERFORATION [None]
